FAERS Safety Report 8964886 (Version 1)
Quarter: 2012Q4

REPORT INFORMATION
  Report Type: 
  Country: BE (occurrence: BE)
  Receive Date: 20121213
  Receipt Date: 20121213
  Transmission Date: 20130627
  Serious: Yes (Other)
  Sender: FDA-Public Use
  Company Number: BE-ELI_LILLY_AND_COMPANY-BE201212001941

PATIENT
  Age: 44 Year
  Sex: Female
  Weight: 110 kg

DRUGS (7)
  1. DOBUTAMINE HYDROCHLORIDE [Suspect]
     Indication: CARDIOGENIC SHOCK
     Dosage: 416 UNK, UNK
  2. INSULIN [Concomitant]
     Indication: CARDIOGENIC SHOCK
     Dosage: 80 u, single
  3. INSULIN [Concomitant]
     Dosage: UNK UNK, other
  4. DEXTROSE [Concomitant]
     Dosage: 30 g, single
  5. DEXTROSE [Concomitant]
     Dosage: UNK, other
  6. POTASSIUM [Concomitant]
  7. NOREPINEPHRINE [Concomitant]
     Indication: HAEMODYNAMIC INSTABILITY
     Dosage: 33 UNK, UNK

REACTIONS (2)
  - Oxygen consumption increased [Recovering/Resolving]
  - Heart rate increased [Recovering/Resolving]
